FAERS Safety Report 13540883 (Version 1)
Quarter: 2017Q2

REPORT INFORMATION
  Report Type: Spontaneous
  Country: US (occurrence: US)
  Receive Date: 20170512
  Receipt Date: 20170512
  Transmission Date: 20170830
  Serious: No
  Sender: FDA-Public Use
  Company Number: US-TEIKOKU PHARMA USA-TPU2017-00172

PATIENT
  Age: 54 Year
  Sex: Female
  Weight: 61.29 kg

DRUGS (13)
  1. LIDODERM [Suspect]
     Active Substance: LIDOCAINE
     Indication: LIGAMENT RUPTURE
  2. LIDOCAINE PATCH [Suspect]
     Active Substance: LIDOCAINE
     Indication: LIGAMENT RUPTURE
  3. AMBIEN [Concomitant]
     Active Substance: ZOLPIDEM TARTRATE
  4. ELAVIL [Concomitant]
     Active Substance: AMITRIPTYLINE HYDROCHLORIDE
     Indication: CYSTITIS INTERSTITIAL
     Dates: start: 2006
  5. NORCO [Concomitant]
     Active Substance: ACETAMINOPHEN\HYDROCODONE BITARTRATE
     Dosage: 10/325 MG, AS NEEDED
     Dates: start: 2006
  6. LIDOCAINE PATCH [Suspect]
     Active Substance: LIDOCAINE
     Indication: EXOSTOSIS
  7. PREMARIN [Concomitant]
     Active Substance: ESTROGENS, CONJUGATED
     Dosage: ^325^ AS NEEDED
  8. CELEBREX [Concomitant]
     Active Substance: CELECOXIB
     Dates: start: 2006
  9. LIDODERM [Suspect]
     Active Substance: LIDOCAINE
     Indication: EXOSTOSIS
  10. LIDODERM [Suspect]
     Active Substance: LIDOCAINE
     Indication: OSTEOARTHRITIS
     Dosage: AS NEEDED, DAILY
     Route: 061
     Dates: start: 2011, end: 201702
  11. LIDOCAINE PATCH [Suspect]
     Active Substance: LIDOCAINE
     Indication: OSTEOARTHRITIS
     Dosage: AS NEEDED, DAILY
     Route: 061
     Dates: start: 2011
  12. DITROPAN [Concomitant]
     Active Substance: OXYBUTYNIN CHLORIDE
     Dates: start: 2006
  13. COMPOUND MED FOR INTERSTITIAL CYSTITIS [Concomitant]

REACTIONS (3)
  - Foot fracture [Not Recovered/Not Resolved]
  - Exostosis [Not Recovered/Not Resolved]
  - Ligament rupture [Not Recovered/Not Resolved]

NARRATIVE: CASE EVENT DATE: 201605
